FAERS Safety Report 4391081-2 (Version None)
Quarter: 2004Q2

REPORT INFORMATION
  Report Type: 
  Country: None (occurrence: None)
  Receive Date: 20040621
  Receipt Date: 20031121
  Transmission Date: 20050107
  Serious: Yes (Death)
  Sender: FDA-Public Use
  Company Number: USA-2003-0010963

PATIENT
  Age: 47 Year
  Sex: Male
  Weight: 158.7 kg

DRUGS (4)
  1. OXYCODONE HCL [Suspect]
  2. TRAZODONE HCL [Suspect]
  3. CAFFEINE (CAFFEINE) [Suspect]
  4. LORAZEPAM [Concomitant]

REACTIONS (1)
  - ACCIDENTAL OVERDOSE [None]
